FAERS Safety Report 6097017-0 (Version None)
Quarter: 2009Q1

REPORT INFORMATION
  Report Type: 
  Country: None (occurrence: None)
  Receive Date: 20090227
  Receipt Date: 20090216
  Transmission Date: 20090719
  Serious: Yes (Other)
  Sender: FDA-Public Use
  Company Number: PHHY2009HU05497

PATIENT
  Age: 66 Year
  Sex: Female

DRUGS (2)
  1. EXFORGE [Suspect]
     Dosage: 80/5 MG
     Route: 048
  2. BRINALDIX [Concomitant]
     Indication: DIURETIC THERAPY
     Dosage: 20 MG, QD

REACTIONS (1)
  - CEREBROVASCULAR ACCIDENT [None]
